FAERS Safety Report 14180269 (Version 1)
Quarter: 2017Q4

REPORT INFORMATION
  Report Type: Spontaneous
  Country: US (occurrence: US)
  Receive Date: 20171110
  Receipt Date: 20171110
  Transmission Date: 20180321
  Serious: No
  Sender: FDA-Public Use
  Company Number: US-OTSUKA-2017_008788

PATIENT
  Age: 64 Year
  Sex: Female

DRUGS (4)
  1. NUEDEXTA [Suspect]
     Active Substance: DEXTROMETHORPHAN HYDROBROMIDE\QUINIDINE SULFATE
     Indication: AFFECT LABILITY
     Dosage: UNK, QD
     Route: 065
     Dates: start: 201702, end: 201702
  2. NUEDEXTA [Suspect]
     Active Substance: DEXTROMETHORPHAN HYDROBROMIDE\QUINIDINE SULFATE
     Dosage: UNK, BID
     Route: 065
     Dates: start: 201702, end: 201702
  3. DEPAKOTE [Concomitant]
     Active Substance: DIVALPROEX SODIUM
     Indication: SEIZURE
     Dosage: UNK
     Route: 065
  4. TRILEPTAL [Concomitant]
     Active Substance: OXCARBAZEPINE
     Indication: SEIZURE
     Dosage: UNK
     Route: 065

REACTIONS (2)
  - Therapeutic response shortened [Unknown]
  - Prescribed underdose [Unknown]

NARRATIVE: CASE EVENT DATE: 201702
